APPROVED DRUG PRODUCT: PAMIDRONATE DISODIUM
Active Ingredient: PAMIDRONATE DISODIUM
Strength: 30MG/VIAL
Dosage Form/Route: INJECTABLE;INJECTION
Application: A077433 | Product #001 | TE Code: AP
Applicant: AREVA PHARMACEUTICALS INC
Approved: Nov 26, 2008 | RLD: No | RS: No | Type: RX